FAERS Safety Report 17427731 (Version 1)
Quarter: 2020Q1

REPORT INFORMATION
  Report Type: Spontaneous
  Country: CZ (occurrence: CZ)
  Receive Date: 20200218
  Receipt Date: 20200218
  Transmission Date: 20200409
  Serious: Yes (Other)
  Sender: FDA-Public Use
  Company Number: CZ-ACCORD-152668

PATIENT
  Age: 56 Year
  Sex: Male

DRUGS (4)
  1. FLUOROURACIL. [Suspect]
     Active Substance: FLUOROURACIL
     Indication: ADENOCARCINOMA OF COLON
     Dosage: (CETUXIMAB + FOLFIRI REGIMEN)
     Dates: start: 201508, end: 201707
  2. IRINOTECAN [Suspect]
     Active Substance: IRINOTECAN
     Indication: ADENOCARCINOMA OF COLON
     Dosage: (CETUXIMAB + FOLFIRI REGIMEN)
     Route: 042
     Dates: start: 201508, end: 201707
  3. CETUXIMAB. [Suspect]
     Active Substance: CETUXIMAB
     Indication: ADENOCARCINOMA OF COLON
     Dosage: (CETUXIMAB + FOLFIRI REGIMEN)
     Dates: start: 201508, end: 201707
  4. FOLINIC ACID [Suspect]
     Active Substance: LEUCOVORIN
     Indication: ADENOCARCINOMA OF COLON
     Dosage: (CETUXIMAB + FOLFIRI REGIMEN)
     Route: 042
     Dates: start: 201508, end: 201707

REACTIONS (6)
  - Diarrhoea [Unknown]
  - Skin toxicity [Recovered/Resolved]
  - Weight decreased [Recovered/Resolved]
  - Leukopenia [Unknown]
  - Alopecia [Unknown]
  - Fatigue [Recovered/Resolved]
